FAERS Safety Report 13553703 (Version 1)
Quarter: 2017Q2

REPORT INFORMATION
  Report Type: Spontaneous
  Country: US (occurrence: US)
  Receive Date: 20170517
  Receipt Date: 20170517
  Transmission Date: 20170830
  Serious: No
  Sender: FDA-Public Use
  Company Number: US-TRIS PHARMA, INC-2017TRISPO00071

PATIENT

DRUGS (3)
  1. DYANAVEL XR [Suspect]
     Active Substance: AMPHETAMINE
     Dosage: UNK
     Route: 065
     Dates: start: 2017
  2. DYANAVEL XR [Suspect]
     Active Substance: AMPHETAMINE
     Indication: ATTENTION DEFICIT/HYPERACTIVITY DISORDER
     Dosage: 2 ML PER DAY FOR 3 DAYS
     Route: 065
     Dates: start: 2017, end: 2017
  3. DYANAVEL XR [Suspect]
     Active Substance: AMPHETAMINE
     Dosage: 4 ML UNTIL THE END OF THE MONTH (LESS THAN 30 DAYS)
     Route: 065
     Dates: start: 2017, end: 2017

REACTIONS (3)
  - Abdominal pain upper [Unknown]
  - Weight decreased [Not Recovered/Not Resolved]
  - Nausea [Recovered/Resolved]

NARRATIVE: CASE EVENT DATE: 20170227
